FAERS Safety Report 22943805 (Version 3)
Quarter: 2024Q1

REPORT INFORMATION
  Report Type: Spontaneous
  Country: US (occurrence: US)
  Receive Date: 20230914
  Receipt Date: 20240104
  Transmission Date: 20240410
  Serious: Yes (Hospitalization, Other)
  Sender: FDA-Public Use
  Company Number: US-PFIZER INC-PV202300154584

PATIENT
  Age: 68 Year
  Sex: Female
  Weight: 90.04 kg

DRUGS (16)
  1. XELJANZ XR [Suspect]
     Active Substance: TOFACITINIB CITRATE
     Indication: Rheumatoid arthritis
     Dosage: 11 MG, DAILY
     Route: 048
     Dates: start: 20191113, end: 20191219
  2. XELJANZ XR [Suspect]
     Active Substance: TOFACITINIB CITRATE
     Dosage: 11 MG, DAILY
     Route: 048
     Dates: start: 202003, end: 2023
  3. CYCLOBENZAPRINE [Concomitant]
     Active Substance: CYCLOBENZAPRINE
     Indication: Osteoarthritis
     Dosage: 10 MG, AS NEEDED
     Route: 048
  4. CYCLOBENZAPRINE [Concomitant]
     Active Substance: CYCLOBENZAPRINE
     Indication: Neck pain
  5. CYCLOBENZAPRINE [Concomitant]
     Active Substance: CYCLOBENZAPRINE
     Indication: Muscle spasms
  6. FAMOTIDINE [Concomitant]
     Active Substance: FAMOTIDINE
     Indication: NSAID exacerbated respiratory disease
     Dosage: 20 MG, DAILY
  7. LEVOTHYROXINE [Concomitant]
     Active Substance: LEVOTHYROXINE
     Indication: Hypothyroidism
     Dosage: 75 UG, DAILY
     Route: 048
  8. LOSARTAN [Concomitant]
     Active Substance: LOSARTAN
     Indication: Hypertension
     Dosage: 50 MG, 2X/DAY
     Route: 048
  9. MELOXICAM [Concomitant]
     Active Substance: MELOXICAM
     Indication: Osteoarthritis
     Dosage: 15 MG, DAILY (WITH FOOD)
  10. MELOXICAM [Concomitant]
     Active Substance: MELOXICAM
     Indication: Rheumatoid arthritis
  11. MELOXICAM [Concomitant]
     Active Substance: MELOXICAM
     Indication: Arthralgia
  12. METOPROLOL SUCCINATE [Concomitant]
     Active Substance: METOPROLOL SUCCINATE
     Indication: Hypertension
     Dosage: 50 MG, DAILY
     Route: 048
  13. PREDNISONE [Concomitant]
     Active Substance: PREDNISONE
     Indication: Rheumatoid arthritis
     Dosage: UNK, AS NEEDED (STARTING WITH 4 TABLETS AND DECREASE BY 1 TABLET EVERY 3 DAYS UNTILL OFF)
  14. PREDNISONE [Concomitant]
     Active Substance: PREDNISONE
     Indication: Arthritis
  15. PREGABALIN [Concomitant]
     Active Substance: PREGABALIN
     Indication: Hip arthroplasty
     Dosage: 75 MG, 2X/DAY (AS DIRECTED BY 14 DAYS)
     Route: 048
  16. VITAMIN D3 [Concomitant]
     Active Substance: CHOLECALCIFEROL
     Indication: General physical health deterioration
     Dosage: 125 UG, DAILY
     Route: 048

REACTIONS (3)
  - Osteonecrosis [Recovered/Resolved]
  - Brain death [Unknown]
  - Nerve injury [Unknown]

NARRATIVE: CASE EVENT DATE: 20230422
